FAERS Safety Report 24016007 (Version 1)
Quarter: 2024Q2

REPORT INFORMATION
  Report Type: Spontaneous
  Country: FR (occurrence: FR)
  Receive Date: 20240626
  Receipt Date: 20240626
  Transmission Date: 20240716
  Serious: Yes (Hospitalization)
  Sender: FDA-Public Use
  Company Number: FR-ANIPHARMA-2024-FR-000098

PATIENT
  Age: 67 Year
  Sex: Female

DRUGS (5)
  1. CANDESARTAN CILEXETIL [Suspect]
     Active Substance: CANDESARTAN CILEXETIL
     Indication: Hypertension
     Dosage: 8 MG DAILY
     Route: 048
  2. HUMIRA [Suspect]
     Active Substance: ADALIMUMAB
     Dosage: 40 MG Q2WK
     Route: 058
     Dates: start: 2017
  3. RABEPRAZOLE SODIUM [Suspect]
     Active Substance: RABEPRAZOLE SODIUM
     Dosage: 20 MG DAILY
     Route: 048
  4. CARBOMER [Concomitant]
     Active Substance: CARBOMER
  5. DACRYOSERUM [Concomitant]

REACTIONS (1)
  - Vascular purpura [Not Recovered/Not Resolved]

NARRATIVE: CASE EVENT DATE: 20240201
